FAERS Safety Report 5755427-2 (Version None)
Quarter: 2008Q2

REPORT INFORMATION
  Report Type: 
  Country: None (occurrence: None)
  Receive Date: 20080529
  Receipt Date: 20080529
  Transmission Date: 20081010
  Serious: Yes (Other)
  Sender: FDA-Public Use
  Company Number: None

PATIENT
  Age: 53 Year
  Sex: Female

DRUGS (2)
  1. CREST PROHEALTH MOUTHWASH NA CREST [Suspect]
     Dates: start: 20080201, end: 20080420
  2. CREST PROHEALTH MOUTHWASH NA CREST [Suspect]
     Dates: start: 20080420, end: 20080420

REACTIONS (1)
  - TOOTH DISCOLOURATION [None]
